FAERS Safety Report 13861368 (Version 12)
Quarter: 2021Q4

REPORT INFORMATION
  Report Type: Spontaneous
  Country: JP (occurrence: JP)
  Receive Date: 20170811
  Receipt Date: 20211001
  Transmission Date: 20220303
  Serious: Yes (Hospitalization, Other)
  Sender: FDA-Public Use
  Company Number: JP-UNITED THERAPEUTICS-UNT-2017-011332

PATIENT
  Age: 15 Year
  Sex: Male
  Weight: 46.1 kg

DRUGS (33)
  1. REMODULIN [Suspect]
     Active Substance: TREPROSTINIL
     Indication: Pulmonary arterial hypertension
     Dosage: 0.054 ?G/KG, CONTINUING
     Route: 041
     Dates: start: 20151228
  2. REMODULIN [Suspect]
     Active Substance: TREPROSTINIL
     Dosage: 0.112 ?G/KG, CONTINUING
     Route: 041
  3. REMODULIN [Suspect]
     Active Substance: TREPROSTINIL
     Dosage: 0.141 ?G/KG, CONTINUING
     Route: 041
  4. REMODULIN [Suspect]
     Active Substance: TREPROSTINIL
     Dosage: 0.139 ?G/KG, CONTINUING
     Route: 041
  5. REMODULIN [Suspect]
     Active Substance: TREPROSTINIL
     Dosage: UNK, CONTINUING (REDUCED DOSE)
     Route: 041
     Dates: end: 20200308
  6. ADCIRCA [Concomitant]
     Active Substance: TADALAFIL
     Indication: Pulmonary arterial hypertension
     Dosage: 40 MG, QD
     Route: 048
     Dates: start: 201301
  7. SPIRONOLACTONE [Concomitant]
     Active Substance: SPIRONOLACTONE
     Indication: Pulmonary arterial hypertension
     Dosage: 25 MG, QD
     Route: 048
     Dates: start: 20160405
  8. OPSUMIT [Concomitant]
     Active Substance: MACITENTAN
     Indication: Pulmonary arterial hypertension
     Dosage: 10 MG, QD
     Route: 048
     Dates: start: 201611
  9. BOSENTAN [Concomitant]
     Active Substance: BOSENTAN
     Indication: Pulmonary arterial hypertension
     Dosage: UNK
     Route: 048
     Dates: start: 201211, end: 20170403
  10. RINDERON VG [Concomitant]
     Active Substance: BETAMETHASONE VALERATE\GENTAMICIN SULFATE
     Indication: Product used for unknown indication
     Dosage: UNK
     Route: 061
     Dates: start: 20151229
  11. CEFEPIME HYDROCHLORIDE [Concomitant]
     Active Substance: CEFEPIME HYDROCHLORIDE
     Indication: Product used for unknown indication
     Dosage: UNK
     Route: 042
  12. TRACLEER [Concomitant]
     Active Substance: BOSENTAN
     Indication: Pulmonary arterial hypertension
     Dosage: 250 MG, QD
     Route: 048
     Dates: start: 201211, end: 20161115
  13. FUROSEMIDE [Concomitant]
     Active Substance: FUROSEMIDE
     Indication: Pulmonary arterial hypertension
     Dosage: 20 MG, QD
     Route: 048
     Dates: start: 20160405
  14. METOCLOPRAMIDE [Concomitant]
     Active Substance: METOCLOPRAMIDE
     Indication: Product used for unknown indication
     Dosage: UNK, ASNECESSARY
     Route: 048
     Dates: start: 20160419, end: 20160421
  15. BIFIDOBACTERIUM SPP. [Concomitant]
     Active Substance: BIFIDOBACTERIUM SPP.
     Indication: Product used for unknown indication
     Dosage: 3 DF, QD
     Route: 048
     Dates: start: 20160419, end: 20160421
  16. FAMVIR [Concomitant]
     Active Substance: FAMCICLOVIR
     Indication: Product used for unknown indication
     Dosage: 1500 MG, QD
     Route: 048
     Dates: start: 20160708, end: 20160714
  17. CALONAL [Concomitant]
     Active Substance: ACETAMINOPHEN
     Indication: Headache
     Dosage: 1200 MG, QD
     Route: 048
     Dates: start: 20160708, end: 20160714
  18. Eltacin [Concomitant]
     Indication: Arthropod sting
     Dosage: UNK
     Route: 065
     Dates: start: 20160708, end: 2016
  19. CLINDAMYCIN PHOSPHATE [Concomitant]
     Active Substance: CLINDAMYCIN PHOSPHATE
     Indication: Acne
     Dosage: UNK
     Route: 065
     Dates: start: 20160705
  20. CLINDAMYCIN PHOSPHATE [Concomitant]
     Active Substance: CLINDAMYCIN PHOSPHATE
     Dosage: UNK
     Route: 065
     Dates: start: 20180308
  21. CLINDAMYCIN PHOSPHATE [Concomitant]
     Active Substance: CLINDAMYCIN PHOSPHATE
     Dosage: UNK
     Route: 065
     Dates: start: 20190509
  22. CHONDROITIN SULFATE (BOVINE) [Concomitant]
     Active Substance: CHONDROITIN SULFATE (BOVINE)
     Indication: Dermatitis atopic
     Dosage: UNK
     Route: 065
     Dates: start: 20160705
  23. CHONDROITIN SULFATE (BOVINE) [Concomitant]
     Active Substance: CHONDROITIN SULFATE (BOVINE)
     Dosage: UNK
     Route: 065
     Dates: start: 20180308
  24. CHONDROITIN SULFATE (BOVINE) [Concomitant]
     Active Substance: CHONDROITIN SULFATE (BOVINE)
     Dosage: UNK
     Route: 065
     Dates: start: 20190214
  25. LOCOID [Concomitant]
     Active Substance: HYDROCORTISONE BUTYRATE
     Indication: Dermatitis atopic
     Dosage: UNK
     Route: 065
     Dates: start: 20161029
  26. LOCOID [Concomitant]
     Active Substance: HYDROCORTISONE BUTYRATE
     Dosage: UNK
     Route: 065
     Dates: start: 20191010
  27. CARBOCYSTEINE [Concomitant]
     Active Substance: CARBOCYSTEINE
     Indication: Infection
     Dosage: 1500 MG, QD
     Route: 048
     Dates: start: 20170402, end: 20170403
  28. CARBOCYSTEINE [Concomitant]
     Active Substance: CARBOCYSTEINE
     Dosage: 1500 MG, QD
     Route: 048
     Dates: start: 20180813, end: 20180817
  29. AMBROXOL HYDROCHLORIDE [Concomitant]
     Active Substance: AMBROXOL HYDROCHLORIDE
     Indication: Infection
     Dosage: 45 MG, QD
     Route: 048
     Dates: start: 20170402, end: 20170403
  30. AMBROXOL HYDROCHLORIDE [Concomitant]
     Active Substance: AMBROXOL HYDROCHLORIDE
     Dosage: 45 MG, QD
     Route: 048
     Dates: start: 20180813, end: 20180817
  31. Asverin [Concomitant]
     Indication: Infection
     Dosage: 120 MG, QD
     Route: 048
     Dates: start: 20170402, end: 20170403
  32. LOXOPROFEN [Concomitant]
     Active Substance: LOXOPROFEN
     Indication: Headache
     Dosage: 60 MG, QD
     Route: 048
     Dates: start: 20181213
  33. OLOPATADINE HYDROCHLORIDE [Concomitant]
     Active Substance: OLOPATADINE HYDROCHLORIDE
     Indication: Seasonal allergy
     Dosage: 10 MG, QD
     Route: 048
     Dates: start: 20190304, end: 20190403

REACTIONS (6)
  - Vascular device infection [Recovered/Resolved]
  - Klebsiella bacteraemia [Recovered/Resolved]
  - Vascular device infection [Recovered/Resolved]
  - Bacteraemia [Unknown]
  - Diarrhoea [Unknown]
  - Platelet count decreased [Recovered/Resolved]

NARRATIVE: CASE EVENT DATE: 20170623
